FAERS Safety Report 10886128 (Version 1)
Quarter: 2015Q1

REPORT INFORMATION
  Report Type: Report from Study
  Country: AR (occurrence: JP)
  Receive Date: 20150304
  Receipt Date: 20150304
  Transmission Date: 20150721
  Serious: Yes (Other)
  Sender: FDA-Public Use
  Company Number: AR-BAYER-2015-030243

PATIENT
  Age: 87 Year
  Sex: Female

DRUGS (11)
  1. DOXAZOSIN [Concomitant]
     Active Substance: DOXAZOSIN\DOXAZOSIN MESYLATE
  2. HALOPERIDOL. [Concomitant]
     Active Substance: HALOPERIDOL
  3. ZOPICLONE [Concomitant]
     Active Substance: ZOPICLONE
  4. POTASSIUM [Concomitant]
     Active Substance: POTASSIUM
  5. NIFEDIPINE. [Suspect]
     Active Substance: NIFEDIPINE
  6. FAMOTIDINE. [Concomitant]
     Active Substance: FAMOTIDINE
  7. ACETYLSALICYLIC ACID [Concomitant]
     Active Substance: ASPIRIN
  8. LINAGLIPTIN [Suspect]
     Active Substance: LINAGLIPTIN
  9. EZETIMIBE. [Concomitant]
     Active Substance: EZETIMIBE
  10. HYDROCHLOROTHIAZIDE W/LOSARTAN [Concomitant]
     Active Substance: HYDROCHLOROTHIAZIDE\LOSARTAN
  11. CILOSTAZOL. [Suspect]
     Active Substance: CILOSTAZOL

REACTIONS (2)
  - Renal failure [None]
  - Cardiac failure congestive [None]
